FAERS Safety Report 7475684-4 (Version None)
Quarter: 2011Q2

REPORT INFORMATION
  Report Type: 
  Country: None (occurrence: None)
  Receive Date: 20110512
  Receipt Date: 20110429
  Transmission Date: 20111010
  Serious: Yes (Hospitalization)
  Sender: FDA-Public Use
  Company Number: US-ELI_LILLY_AND_COMPANY-US201101000199

PATIENT
  Sex: Male
  Weight: 120 kg

DRUGS (1)
  1. HUMULIN R [Suspect]
     Indication: HYPERGLYCAEMIA
     Dosage: 250 U, EVERY 12HRS
     Route: 058
     Dates: start: 20101210

REACTIONS (3)
  - INTERCEPTED MEDICATION ERROR [None]
  - WRONG TECHNIQUE IN DRUG USAGE PROCESS [None]
  - PNEUMONIA [None]
